FAERS Safety Report 9208937 (Version 3)
Quarter: 2013Q3

REPORT INFORMATION
  Report Type: Report from Study
  Country: GB (occurrence: GB)
  Receive Date: 20130404
  Receipt Date: 20130910
  Transmission Date: 20140515
  Serious: Yes (Other)
  Sender: FDA-Public Use
  Company Number: PHFR2012GB006723

PATIENT
  Age: 78 Year
  Sex: Male

DRUGS (1)
  1. ICL670A [Suspect]
     Indication: HAEMOSIDEROSIS
     Dosage: UNK UKN, UNK
     Route: 048
     Dates: start: 20110822

REACTIONS (1)
  - Fatigue [Unknown]
